FAERS Safety Report 8925878 (Version 3)
Quarter: 2013Q1

REPORT INFORMATION
  Report Type: Report from Study
  Country: JP (occurrence: JP)
  Receive Date: 20121126
  Receipt Date: 20130208
  Transmission Date: 20140127
  Serious: Yes (Hospitalization)
  Sender: FDA-Public Use
  Company Number: JP-JNJFOC-20121109424

PATIENT
  Age: 17 Year
  Sex: Female
  Weight: 39 kg

DRUGS (15)
  1. INFLIXIMAB, RECOMBINANT [Suspect]
     Indication: COLITIS ULCERATIVE
     Route: 042
     Dates: start: 20120928
  2. INFLIXIMAB, RECOMBINANT [Suspect]
     Indication: COLITIS ULCERATIVE
     Route: 042
     Dates: start: 20120817
  3. PREDNISOLONE [Concomitant]
     Route: 048
  4. PENTASA [Concomitant]
     Indication: COLITIS ULCERATIVE
     Dates: start: 20091001, end: 20121015
  5. CLOSTRIDIUM BUTYRICUM [Concomitant]
     Indication: COLITIS ULCERATIVE
     Route: 048
     Dates: start: 20091209
  6. ALFAROL [Concomitant]
     Indication: PROPHYLAXIS
     Route: 048
     Dates: start: 20100826, end: 20121206
  7. AFTACH [Concomitant]
     Indication: APHTHOUS STOMATITIS
     Dates: start: 20120817
  8. DESPA [Concomitant]
     Indication: APHTHOUS STOMATITIS
     Dates: start: 20120911
  9. IMURAN [Concomitant]
     Indication: COLITIS ULCERATIVE
     Route: 048
     Dates: start: 20120911, end: 20121110
  10. ASACOL [Concomitant]
     Indication: COLITIS ULCERATIVE
     Route: 048
     Dates: start: 20121015, end: 20121023
  11. PREDONINE [Concomitant]
     Indication: COLITIS ULCERATIVE
     Route: 048
     Dates: start: 20121215
  12. PREDONINE [Concomitant]
     Indication: COLITIS ULCERATIVE
     Route: 048
     Dates: start: 20121024, end: 20121206
  13. SAWACILLIN [Concomitant]
     Indication: COLITIS ULCERATIVE
     Route: 048
     Dates: start: 20121024, end: 20121128
  14. FLAGYL [Concomitant]
     Indication: COLITIS ULCERATIVE
     Route: 048
     Dates: start: 20121024, end: 20121206
  15. ACUATIM [Concomitant]
     Indication: ACNE
     Dates: start: 20121031

REACTIONS (1)
  - Colitis ulcerative [Recovered/Resolved]
